FAERS Safety Report 18564017 (Version 2)
Quarter: 2023Q2

REPORT INFORMATION
  Report Type: Spontaneous
  Country: DK (occurrence: DK)
  Receive Date: 20201201
  Receipt Date: 20230424
  Transmission Date: 20230721
  Serious: Yes (Hospitalization, Other)
  Sender: FDA-Public Use
  Company Number: None

PATIENT
  Age: 33 Year
  Sex: Male
  Weight: 109 kg

DRUGS (3)
  1. RISPERIDONE [Suspect]
     Active Substance: RISPERIDONE
     Indication: Schizophrenia
     Dosage: 2 MG
     Route: 065
  2. RISPERIDONE [Suspect]
     Active Substance: RISPERIDONE
     Indication: Schizophrenia
     Dosage: 2 MG
     Route: 065
  3. RISPERIDONE [Suspect]
     Active Substance: RISPERIDONE
     Indication: Schizophrenia
     Dosage: 2 MG
     Route: 065

REACTIONS (58)
  - Gastrooesophageal reflux disease [Not Recovered/Not Resolved]
  - Tremor [Not Recovered/Not Resolved]
  - Intentional self-injury [Unknown]
  - Hair growth abnormal [Unknown]
  - Product use in unapproved indication [Unknown]
  - Paraesthesia [Unknown]
  - Dandruff [Not Recovered/Not Resolved]
  - Suicidal ideation [Unknown]
  - Nasal congestion [Not Recovered/Not Resolved]
  - Breast pain [Recovered/Resolved]
  - Hyperventilation [Recovering/Resolving]
  - Self esteem decreased [Unknown]
  - Dementia Alzheimer^s type [Unknown]
  - Off label use [Unknown]
  - Erectile dysfunction [Not Recovered/Not Resolved]
  - Myalgia [Not Recovered/Not Resolved]
  - Rash [Not Recovered/Not Resolved]
  - Hypersomnia [Recovered/Resolved]
  - Skin plaque [Not Recovered/Not Resolved]
  - Dyspnoea [Recovered/Resolved]
  - Face oedema [Recovered/Resolved]
  - Gynaecomastia [Not Recovered/Not Resolved]
  - Vision blurred [Not Recovered/Not Resolved]
  - Constipation [Not Recovered/Not Resolved]
  - Speech disorder [Recovered/Resolved]
  - Hallucination, visual [Unknown]
  - Gastric pH decreased [Not Recovered/Not Resolved]
  - Memory impairment [Recovered/Resolved]
  - Hallucination, auditory [Unknown]
  - Headache [Recovered/Resolved]
  - Disturbance in attention [Not Recovered/Not Resolved]
  - Pruritus [Not Recovered/Not Resolved]
  - Dry mouth [Not Recovered/Not Resolved]
  - Sleep apnoea syndrome [Recovered/Resolved]
  - Syncope [Unknown]
  - Illness anxiety disorder [Unknown]
  - Depressed mood [Unknown]
  - Tinnitus [Recovered/Resolved]
  - Feeling abnormal [Not Recovered/Not Resolved]
  - Oedema [Recovered/Resolved]
  - Fatigue [Unknown]
  - Dysuria [Unknown]
  - Hepatic function abnormal [Unknown]
  - Haematochezia [Not Recovered/Not Resolved]
  - Dyspepsia [Not Recovered/Not Resolved]
  - Anxiety [Not Recovered/Not Resolved]
  - Seborrhoeic dermatitis [Not Recovered/Not Resolved]
  - Confusional state [Not Recovered/Not Resolved]
  - Hyperhidrosis [Not Recovered/Not Resolved]
  - Dizziness [Not Recovered/Not Resolved]
  - Ejaculation disorder [Not Recovered/Not Resolved]
  - Toothache [Not Recovered/Not Resolved]
  - Psoriasis [Not Recovered/Not Resolved]
  - Hot flush [Not Recovered/Not Resolved]
  - Erysipelas [Not Recovered/Not Resolved]
  - Onychomycosis [Not Recovered/Not Resolved]
  - Eczema [Not Recovered/Not Resolved]
  - Skin disorder [Not Recovered/Not Resolved]

NARRATIVE: CASE EVENT DATE: 20110101
